FAERS Safety Report 9022964 (Version 2)
Quarter: 2014Q1

REPORT INFORMATION
  Report Type: Spontaneous
  Country: US (occurrence: US)
  Receive Date: 20130120
  Receipt Date: 20140205
  Transmission Date: 20141002
  Serious: No
  Sender: FDA-Public Use
  Company Number: US-ALLERGAN-1216188US

PATIENT
  Sex: Male

DRUGS (2)
  1. BOTOX [Suspect]
     Indication: MUSCLE SPASTICITY
     Dosage: UNK, SINGLE
     Route: 030
     Dates: start: 20121005, end: 20121005
  2. BOTOX [Suspect]
     Dosage: QD300 UNITS, UNK
     Dates: start: 20120502, end: 20120502

REACTIONS (3)
  - Off label use [Unknown]
  - Overdose [Unknown]
  - Muscular weakness [Recovered/Resolved]
